FAERS Safety Report 5253758-6 (Version None)
Quarter: 2007Q1

REPORT INFORMATION
  Report Type: 
  Country: None (occurrence: None)
  Receive Date: 20061201
  Receipt Date: 20060803
  Transmission Date: 20070707
  Serious: No
  Sender: FDA-Public Use
  Company Number: 2006PV018777

PATIENT
  Age: 59 Year
  Sex: Male
  Weight: 110.6777 kg

DRUGS (6)
  1. BYETTA [Suspect]
     Indication: DIABETES MELLITUS NON-INSULIN-DEPENDENT
     Dosage: 10 MCG;BID;SC
     Route: 058
     Dates: start: 20060301
  2. AVANDAMET [Concomitant]
  3. LIPITOR [Concomitant]
  4. NIASPAN [Concomitant]
  5. ALTACE [Concomitant]
  6. ASPIRIN [Concomitant]

REACTIONS (4)
  - ABDOMINAL PAIN [None]
  - CONSTIPATION [None]
  - FLATULENCE [None]
  - WEIGHT DECREASED [None]
